FAERS Safety Report 20469294 (Version 2)
Quarter: 2022Q1

REPORT INFORMATION
  Report Type: Spontaneous
  Country: US (occurrence: None)
  Receive Date: 20220214
  Receipt Date: 20220327
  Transmission Date: 20220423
  Serious: Yes (Hospitalization, Other)
  Sender: FDA-Public Use
  Company Number: 2022A062359

PATIENT
  Age: 46 Year
  Sex: Female
  Weight: 122.5 kg

DRUGS (1)
  1. FASENRA [Suspect]
     Active Substance: BENRALIZUMAB
     Indication: Asthma
     Route: 058
     Dates: start: 202111

REACTIONS (4)
  - Road traffic accident [Unknown]
  - Blood iron abnormal [Recovering/Resolving]
  - Blood potassium abnormal [Recovering/Resolving]
  - Blood calcium abnormal [Recovering/Resolving]

NARRATIVE: CASE EVENT DATE: 20220101
